FAERS Safety Report 13713530 (Version 1)
Quarter: 2017Q3

REPORT INFORMATION
  Report Type: Spontaneous
  Country: GB (occurrence: GB)
  Receive Date: 20170704
  Receipt Date: 20170704
  Transmission Date: 20171127
  Serious: Yes (Disabling, Other)
  Sender: FDA-Public Use
  Company Number: GB-ASTRAZENECA-2017SE67971

PATIENT
  Age: 75 Year
  Sex: Male
  Weight: 100 kg

DRUGS (3)
  1. SYMBICORT [Interacting]
     Active Substance: BUDESONIDE\FORMOTEROL FUMARATE DIHYDRATE
     Dosage: 1 DF, TWO TIMES A DAY
     Route: 055
     Dates: start: 20160902
  2. PENTASA [Concomitant]
     Active Substance: MESALAMINE
     Dates: start: 20160311
  3. EKLIRA GENUAIR [Suspect]
     Active Substance: ACLIDINIUM BROMIDE
     Route: 055
     Dates: start: 20170309

REACTIONS (3)
  - Drug interaction [Unknown]
  - Confusional state [Unknown]
  - Disorientation [Recovered/Resolved]

NARRATIVE: CASE EVENT DATE: 20170601
